FAERS Safety Report 9325610 (Version 1)
Quarter: 2013Q2

REPORT INFORMATION
  Report Type: Spontaneous
  Country: FR (occurrence: FR)
  Receive Date: 20130604
  Receipt Date: 20130604
  Transmission Date: 20140414
  Serious: Yes (Disabling)
  Sender: FDA-Public Use
  Company Number: FR-ELI_LILLY_AND_COMPANY-FR201305007029

PATIENT
  Sex: Female

DRUGS (2)
  1. ZYPREXA [Suspect]
     Dosage: 10 MG, EACH EVENING
     Route: 048
     Dates: start: 2006, end: 2011
  2. ZYPREXA [Suspect]
     Dosage: 1 DF, UNKNOWN
     Route: 048
     Dates: start: 2011, end: 201201

REACTIONS (1)
  - Blepharospasm [Not Recovered/Not Resolved]
